FAERS Safety Report 5554487-1 (Version None)
Quarter: 2007Q4

REPORT INFORMATION
  Report Type: 
  Country: None (occurrence: None)
  Receive Date: 20071213
  Receipt Date: 20070728
  Transmission Date: 20080405
  Serious: No
  Sender: FDA-Public Use
  Company Number: US-AMGEN-KDL236474

PATIENT
  Sex: Male

DRUGS (2)
  1. ENBREL [Suspect]
     Indication: PSORIATIC ARTHROPATHY
     Route: 058
     Dates: start: 20040201
  2. UNSPECIFIED MEDICATION [Concomitant]

REACTIONS (3)
  - COAGULOPATHY [None]
  - CONTUSION [None]
  - INJECTION SITE PAIN [None]
